FAERS Safety Report 26092449 (Version 1)
Quarter: 2025Q4

REPORT INFORMATION
  Report Type: Spontaneous
  Country: US (occurrence: None)
  Receive Date: 20251125
  Receipt Date: 20251125
  Transmission Date: 20260117
  Serious: Yes (Other)
  Sender: FDA-CTU
  Company Number: None

PATIENT
  Age: 34 Year
  Sex: Female
  Weight: 96.75 kg

DRUGS (1)
  1. WITCH HAZEL [Suspect]
     Active Substance: WITCH HAZEL
     Indication: Dry skin prophylaxis
     Dosage: FREQUENCY : AT BEDTIME;?
     Route: 061

REACTIONS (6)
  - Product advertising issue [None]
  - Application site erythema [None]
  - Application site exfoliation [None]
  - Application site burn [None]
  - Application site vesicles [None]
  - Application site discolouration [None]

NARRATIVE: CASE EVENT DATE: 20251107
